FAERS Safety Report 9402054 (Version 2)
Quarter: 2013Q3

REPORT INFORMATION
  Report Type: Spontaneous
  Country: BR (occurrence: BR)
  Receive Date: 20130716
  Receipt Date: 20130920
  Transmission Date: 20140515
  Serious: Yes (Other)
  Sender: FDA-Public Use
  Company Number: PHHY2013BR075019

PATIENT
  Age: 14 Year
  Sex: Male

DRUGS (2)
  1. RITALINA [Suspect]
     Indication: ATTENTION DEFICIT/HYPERACTIVITY DISORDER
     Dosage: 3 DF, A DAY
     Route: 048
  2. RISPERDAL [Concomitant]
     Indication: IMPULSE-CONTROL DISORDER
     Dosage: UNK UKN, UNK

REACTIONS (6)
  - Asperger^s disorder [Recovered/Resolved]
  - Depression [Recovered/Resolved]
  - Crying [Recovered/Resolved]
  - Aggression [Recovered/Resolved]
  - Nervousness [Recovered/Resolved]
  - Abnormal behaviour [Recovered/Resolved]
